FAERS Safety Report 13245657 (Version 1)
Quarter: 2017Q1

REPORT INFORMATION
  Report Type: Spontaneous
  Country: IN (occurrence: IN)
  Receive Date: 20170217
  Receipt Date: 20170217
  Transmission Date: 20170428
  Serious: Yes (Other)
  Sender: FDA-Public Use
  Company Number: IN-ASTRAZENECA-2017SE16554

PATIENT
  Age: 25522 Day
  Sex: Female

DRUGS (2)
  1. XELODA [Concomitant]
     Active Substance: CAPECITABINE
     Indication: BREAST CANCER
     Dosage: 2 TABLETS IN MORNING AND  2 TABLETS IN THE EVENING
     Route: 048
  2. FASLODEX [Suspect]
     Active Substance: FULVESTRANT
     Indication: BREAST CANCER
     Dosage: 500.0MG UNKNOWN
     Route: 030
     Dates: start: 20161026, end: 20161122

REACTIONS (2)
  - Condition aggravated [Unknown]
  - Carbohydrate antigen 15-3 increased [Recovering/Resolving]

NARRATIVE: CASE EVENT DATE: 20161225
